FAERS Safety Report 7744090-7 (Version None)
Quarter: 2011Q3

REPORT INFORMATION
  Report Type: 
  Country: None (occurrence: None)
  Receive Date: 20110909
  Receipt Date: 20110909
  Transmission Date: 20111222
  Serious: Yes (Hospitalization)
  Sender: FDA-Public Use
  Company Number: None

PATIENT
  Sex: Male
  Weight: 66.2252 kg

DRUGS (1)
  1. PRADAXA [Suspect]
     Indication: THROMBOSIS
     Dosage: 75 MG 2 A DAY
     Dates: start: 20110617, end: 20110703

REACTIONS (2)
  - UPPER GASTROINTESTINAL HAEMORRHAGE [None]
  - RECTAL HAEMORRHAGE [None]
